FAERS Safety Report 10605867 (Version 1)
Quarter: 2014Q4

REPORT INFORMATION
  Report Type: Spontaneous
  Country: US (occurrence: None)
  Receive Date: 20141121
  Receipt Date: 20141121
  Transmission Date: 20150529
  Serious: Yes (Other)
  Sender: FDA-Public Use
  Company Number: 201411066

PATIENT
  Sex: Male

DRUGS (3)
  1. TESTIM [Suspect]
     Active Substance: TESTOSTERONE
     Route: 062
     Dates: start: 2007, end: 2013
  2. ANDRODERM [Suspect]
     Active Substance: TESTOSTERONE
     Dates: start: 2007, end: 2013
  3. DEPO-TESTOSTERONE [Suspect]
     Active Substance: TESTOSTERONE CYPIONATE
     Dates: start: 2007, end: 2013

REACTIONS (7)
  - Deep vein thrombosis [None]
  - Mental disorder [None]
  - Pain [None]
  - Economic problem [None]
  - Unevaluable event [None]
  - Anxiety [None]
  - Family stress [None]

NARRATIVE: CASE EVENT DATE: 201201
